FAERS Safety Report 19403696 (Version 1)
Quarter: 2021Q2

REPORT INFORMATION
  Report Type: Spontaneous
  Country: CN (occurrence: CN)
  Receive Date: 20210611
  Receipt Date: 20210611
  Transmission Date: 20210717
  Serious: Yes (Hospitalization)
  Sender: FDA-Public Use
  Company Number: CN-GLAXOSMITHKLINE-CNCH2021036211

PATIENT
  Age: 30 Year
  Sex: Female

DRUGS (5)
  1. MONOAMMONIUM GLYCYRRHIZINATE [Concomitant]
     Active Substance: AMMONIUM GLYCYRRHIZATE
     Indication: GASTRIC DISORDER
     Dosage: UNK
     Route: 065
  2. VOTALIN [Suspect]
     Active Substance: DICLOFENAC SODIUM
     Indication: PAIN
     Dosage: 25 MG, QD
     Route: 048
     Dates: start: 20210201, end: 20210218
  3. RABEPRAZOLE [Concomitant]
     Active Substance: RABEPRAZOLE
     Indication: GASTRIC DISORDER
     Dosage: UNK
     Route: 065
  4. SUCRALFATE. [Concomitant]
     Active Substance: SUCRALFATE
     Indication: GASTRIC DISORDER
     Dosage: 0.5 G, BID
     Route: 048
     Dates: start: 20210210, end: 20210218
  5. ADENOSINE. [Concomitant]
     Active Substance: ADENOSINE
     Indication: GASTRIC DISORDER
     Dosage: UNK
     Route: 065

REACTIONS (1)
  - Hepatic function abnormal [Recovering/Resolving]

NARRATIVE: CASE EVENT DATE: 20210219
